FAERS Safety Report 7502717-9 (Version None)
Quarter: 2011Q2

REPORT INFORMATION
  Report Type: 
  Country: None (occurrence: None)
  Receive Date: 20110525
  Receipt Date: 20110511
  Transmission Date: 20111010
  Serious: Yes (Other)
  Sender: FDA-Public Use
  Company Number: PHHY2011FR41057

PATIENT
  Age: 81 Year
  Sex: Male

DRUGS (3)
  1. RASILEZ [Suspect]
     Dosage: 300 MG, UNK
     Route: 048
  2. LASIX [Concomitant]
  3. CORDARONE [Concomitant]

REACTIONS (1)
  - CARDIAC FAILURE [None]
